FAERS Safety Report 16642401 (Version 1)
Quarter: 2019Q3

REPORT INFORMATION
  Report Type: Spontaneous
  Country: US (occurrence: US)
  Receive Date: 20190614
  Receipt Date: 20190614
  Transmission Date: 20191004
  Serious: Yes (Disabling)
  Sender: FDA-Public Use
  Company Number: None

PATIENT
  Age: 41 Year
  Sex: Male
  Weight: 58 kg

DRUGS (1)
  1. ZOLEDRONIC ACID 5MG IV [Suspect]
     Active Substance: ZOLEDRONIC ACID
     Indication: OSTEOPOROSIS
     Dosage: 5MG ANNUALLY IV
     Route: 042
     Dates: start: 2011, end: 2019

REACTIONS (2)
  - Oedema peripheral [None]
  - Tenderness [None]

NARRATIVE: CASE EVENT DATE: 20190529
